FAERS Safety Report 4567941-6 (Version None)
Quarter: 2005Q1

REPORT INFORMATION
  Report Type: 
  Country: None (occurrence: None)
  Receive Date: 20050202
  Receipt Date: 20040625
  Transmission Date: 20050727
  Serious: Yes (Hospitalization, Disabling, Other)
  Sender: FDA-Public Use
  Company Number: USGLA-S-20040061

PATIENT
  Age: 47 Year
  Sex: Female
  Weight: 79.1 kg

DRUGS (6)
  1. NAVELBINE [Suspect]
     Indication: BREAST CANCER
     Dosage: 30MG WEEKLY
     Route: 042
     Dates: start: 20040513, end: 20040616
  2. ZOMETA [Concomitant]
     Indication: BREAST CANCER
     Route: 042
     Dates: start: 20040318
  3. FENTANYL [Concomitant]
  4. OXYCODONE HCL [Concomitant]
     Indication: BREAST CANCER
     Dosage: 5MG AS REQUIRED
     Route: 048
     Dates: start: 20040304
  5. PAXIL [Concomitant]
     Dosage: 10MG PER DAY
     Route: 048
     Dates: start: 20040304
  6. TRASTUZUMAB [Concomitant]

REACTIONS (7)
  - ABDOMINAL DISTENSION [None]
  - ABDOMINAL PAIN [None]
  - BLOOD ALKALINE PHOSPHATASE INCREASED [None]
  - BLOOD AMYLASE INCREASED [None]
  - NAUSEA [None]
  - PANCREATITIS [None]
  - VOMITING [None]
